FAERS Safety Report 14241406 (Version 5)
Quarter: 2024Q4

REPORT INFORMATION
  Report Type: Report from Study
  Country: US (occurrence: US)
  Receive Date: 20171130
  Receipt Date: 20241228
  Transmission Date: 20250115
  Serious: Yes (Hospitalization, Other)
  Sender: AMGEN
  Company Number: US-AMGEN-USASP2017178447

PATIENT
  Age: 49 Year
  Sex: Female

DRUGS (17)
  1. ENBREL [Suspect]
     Active Substance: ETANERCEPT
     Indication: Rheumatoid arthritis
     Dosage: UNK
     Route: 065
     Dates: start: 20001201
  2. ENBREL [Suspect]
     Active Substance: ETANERCEPT
     Dosage: UNK UNK, QWK
     Route: 065
     Dates: end: 201710
  3. METHOTREXATE [Suspect]
     Active Substance: METHOTREXATE
     Indication: Rheumatoid arthritis
     Dosage: UNK
     Route: 065
  4. NORGESIC [Concomitant]
     Active Substance: ASPIRIN\CAFFEINE\ORPHENADRINE CITRATE
     Dosage: UNK
  5. WYGESIC [Concomitant]
     Active Substance: ACETAMINOPHEN\PROPOXYPHENE HYDROCHLORIDE
     Dosage: UNK
  6. INDOCIN [Concomitant]
     Active Substance: INDOMETHACIN
     Dosage: UNK
  7. ORUDIS [Concomitant]
     Active Substance: KETOPROFEN
     Dosage: UNK
  8. DARVOCET [Concomitant]
     Active Substance: ACETAMINOPHEN\PROPOXYPHENE HYDROCHLORIDE
     Dosage: UNK
  9. MOTRIN [Concomitant]
     Active Substance: IBUPROFEN
     Dosage: UNK
  10. CLINORIL [Concomitant]
     Active Substance: SULINDAC
     Dosage: UNK
  11. NAPROSYN [Concomitant]
     Active Substance: NAPROXEN
     Dosage: UNK
  12. FELDENE [Concomitant]
     Active Substance: PIROXICAM
     Dosage: UNK
  13. FOSAMAX [Concomitant]
     Active Substance: ALENDRONATE SODIUM
     Dosage: UNK
  14. ACTONEL [Concomitant]
     Active Substance: RISEDRONATE SODIUM
     Dosage: UNK
  15. CELEBREX [Concomitant]
     Active Substance: CELECOXIB
     Dosage: UNK
  16. PREDNISONE [Concomitant]
     Active Substance: PREDNISONE
     Indication: Rheumatoid arthritis
     Dosage: UNK
     Route: 065
  17. XELJANZ XR [Concomitant]
     Active Substance: TOFACITINIB CITRATE
     Indication: Rheumatoid arthritis
     Dosage: 11 MG, QD
     Route: 048

REACTIONS (4)
  - Myocardial infarction [Unknown]
  - Disability [Not Recovered/Not Resolved]
  - Swelling face [Unknown]
  - Therapeutic product effect incomplete [Unknown]

NARRATIVE: CASE EVENT DATE: 20001216
